FAERS Safety Report 5079169-4 (Version None)
Quarter: 2006Q3

REPORT INFORMATION
  Report Type: 
  Country: None (occurrence: None)
  Receive Date: 20060814
  Receipt Date: 20060727
  Transmission Date: 20061208
  Serious: Yes (Hospitalization)
  Sender: FDA-Public Use
  Company Number: FR-GLAXOSMITHKLINE-B0432396A

PATIENT
  Age: 42 Year
  Sex: Male

DRUGS (3)
  1. AUGMENTIN [Suspect]
     Indication: PYREXIA
     Route: 048
     Dates: start: 20050720, end: 20050723
  2. ROCEPHIN [Suspect]
     Route: 048
     Dates: start: 20050724, end: 20050727
  3. OFLOCET [Suspect]
     Indication: URINARY TRACT INFECTION
     Route: 048
     Dates: start: 20050706

REACTIONS (5)
  - CHILLS [None]
  - DIARRHOEA [None]
  - HYPERHIDROSIS [None]
  - PSEUDOMEMBRANOUS COLITIS [None]
  - PYREXIA [None]
